FAERS Safety Report 8145284-1 (Version None)
Quarter: 2012Q1

REPORT INFORMATION
  Report Type: 
  Country: None (occurrence: None)
  Receive Date: 20120217
  Receipt Date: 20120208
  Transmission Date: 20120608
  Serious: Yes (Hospitalization, Other)
  Sender: FDA-Public Use
  Company Number: PHHY2012KR011280

PATIENT
  Age: 46 Year
  Sex: Male

DRUGS (2)
  1. AZELASTINE [Suspect]
  2. NAPROXEN [Suspect]
     Indication: NASOPHARYNGITIS

REACTIONS (7)
  - OESOPHAGEAL DISORDER [None]
  - REGURGITATION [None]
  - OESOPHAGEAL ULCER [None]
  - MERYCISM [None]
  - DYSPHAGIA [None]
  - OESOPHAGEAL INJURY [None]
  - ODYNOPHAGIA [None]
